FAERS Safety Report 4736263-2 (Version None)
Quarter: 2005Q3

REPORT INFORMATION
  Report Type: 
  Country: None (occurrence: None)
  Receive Date: 20050805
  Receipt Date: 20050805
  Transmission Date: 20060218
  Serious: Yes (Hospitalization)
  Sender: FDA-Public Use
  Company Number: None

PATIENT
  Age: 24 Year
  Sex: Female
  Weight: 68.0396 kg

DRUGS (3)
  1. ZELNORM [Suspect]
     Indication: IRRITABLE BOWEL SYNDROME
     Dosage: 6 MG  2/DAY
     Dates: start: 20050708, end: 20050711
  2. PAXIL [Suspect]
     Indication: ANXIETY
     Dosage: 37.5 MG 1/DAY
     Dates: start: 20020901, end: 20050804
  3. PAXIL [Suspect]
     Indication: DEPRESSION
     Dosage: 37.5 MG 1/DAY
     Dates: start: 20020901, end: 20050804

REACTIONS (8)
  - ABNORMAL DREAMS [None]
  - CRYING [None]
  - DEPRESSION [None]
  - DIZZINESS [None]
  - INSOMNIA [None]
  - TINNITUS [None]
  - VERTIGO [None]
  - VOMITING [None]
